FAERS Safety Report 7769986-1 (Version None)
Quarter: 2011Q3

REPORT INFORMATION
  Report Type: 
  Country: None (occurrence: None)
  Receive Date: 20110922
  Receipt Date: 20100517
  Transmission Date: 20111222
  Serious: No
  Sender: FDA-Public Use
  Company Number: US-ASTRAZENECA-2009SE17544

PATIENT
  Age: 54 Year
  Sex: Female
  Weight: 82.6 kg

DRUGS (2)
  1. ULTRAM [Concomitant]
     Route: 048
     Dates: start: 20080618
  2. SEROQUEL [Suspect]
     Route: 048

REACTIONS (2)
  - DIABETES MELLITUS [None]
  - GESTATIONAL DIABETES [None]
